FAERS Safety Report 25944655 (Version 1)
Quarter: 2025Q4

REPORT INFORMATION
  Report Type: Report from Study
  Country: ZA (occurrence: ZA)
  Receive Date: 20251021
  Receipt Date: 20251021
  Transmission Date: 20260117
  Serious: Yes (Other)
  Sender: ALEXION PHARMACEUTICALS
  Company Number: ZA-AstraZeneca-CH-00973542A

PATIENT
  Age: 66 Year
  Sex: Male

DRUGS (4)
  1. BUDESONIDE\FORMOTEROL [Suspect]
     Active Substance: BUDESONIDE\FORMOTEROL
     Indication: Asthma
     Dosage: 60 MICROGRAM PER INHALATION
  2. MONTELUKAST SODIUM [Concomitant]
     Active Substance: MONTELUKAST SODIUM
     Indication: Asthma
  3. THEOPHYLLINE [Concomitant]
     Active Substance: THEOPHYLLINE
     Indication: Asthma
  4. Allergex [Concomitant]
     Indication: Hypersensitivity

REACTIONS (1)
  - Deafness [Unknown]
